FAERS Safety Report 26105584 (Version 2)
Quarter: 2025Q4

REPORT INFORMATION
  Report Type: Spontaneous
  Country: EU (occurrence: EU)
  Receive Date: 20251201
  Receipt Date: 20251205
  Transmission Date: 20260118
  Serious: Yes (Other)
  Sender: ORGANON
  Company Number: None

PATIENT
  Age: 67 Year
  Sex: Female

DRUGS (9)
  1. EZETIMIBE [Suspect]
     Active Substance: EZETIMIBE
     Indication: Hypercholesterolaemia
     Dosage: 10 MILLIGRAM
     Dates: start: 20251020, end: 20251031
  2. VALSARTAN [Concomitant]
     Active Substance: VALSARTAN
     Indication: Hypertension
     Dosage: ^BEEN TAKING THIS FOR A LONG TIME, NOT SURE WHEN I STARTED^
  3. AMLODIPINE BESYLATE [Concomitant]
     Active Substance: AMLODIPINE BESYLATE
     Indication: Hypertension
     Dosage: BEEN TAKING THIS FOR A LONG TIME, NOT SURE OF EXACT DATE
  4. Eltroxin 50 microgram Tablets [Concomitant]
     Indication: Hypothyroidism
     Dosage: BEEN TAKING THIS FOR MANY YEARS
  5. Influvac sub-unit, suspension for injection in pre-filled syringe Infl [Concomitant]
     Indication: Influenza immunisation
     Dosage: UNK
     Dates: start: 20251020, end: 20251020
  6. DOXYCYCLINE [Concomitant]
     Active Substance: DOXYCYCLINE
     Indication: Respiratory tract infection
     Dosage: 2 TABLETS
  7. PREDNISOLONE [Concomitant]
     Active Substance: PREDNISOLONE
     Indication: Respiratory tract infection
     Dosage: 6 TABS PER DAY FOR 3 DAYS
     Dates: start: 20251002
  8. Beconase Hayfever [Concomitant]
     Indication: Asthma prophylaxis
     Dosage: 2 PUFFS AM AND PM
     Dates: start: 20240101
  9. Beconase Hayfever [Concomitant]
     Dosage: ^2 PUFFS AM AND PM.^

REACTIONS (12)
  - Musculoskeletal stiffness [Recovering/Resolving]
  - Neck pain [Recovered/Resolved]
  - Lymph node pain [Recovered/Resolved]
  - Arthralgia [Recovered/Resolved]
  - Back pain [Recovered/Resolved]
  - Muscular weakness [Recovered/Resolved]
  - Fatigue [Recovered/Resolved]
  - Depressed mood [Recovered/Resolved]
  - Irritability [Recovered/Resolved]
  - Nausea [Unknown]
  - Vomiting [Unknown]
  - Diarrhoea [Unknown]

NARRATIVE: CASE EVENT DATE: 20251022
